FAERS Safety Report 16700055 (Version 1)
Quarter: 2019Q3

REPORT INFORMATION
  Report Type: Report from Study
  Country: RU (occurrence: RU)
  Receive Date: 20190813
  Receipt Date: 20190813
  Transmission Date: 20191004
  Serious: Yes (Other)
  Sender: FDA-Public Use
  Company Number: RU-ASTRAZENECA-2019SF14325

PATIENT
  Age: 60 Year
  Sex: Female
  Weight: 92 kg

DRUGS (10)
  1. BRILINTA [Suspect]
     Active Substance: TICAGRELOR
     Indication: ACUTE CORONARY SYNDROME
     Route: 048
     Dates: start: 201903
  2. CARDIOMAGNYL [Concomitant]
     Active Substance: ASPIRIN\MAGNESIUM HYDROXIDE
  3. LISINOPRIL. [Concomitant]
     Active Substance: LISINOPRIL
  4. TRIMETAZIDINE [Concomitant]
     Active Substance: TRIMETAZIDINE
  5. ASPIRIN CARDIO [Concomitant]
     Active Substance: ASPIRIN
  6. AMLODIPINE [Concomitant]
     Active Substance: AMLODIPINE BESYLATE
  7. BISOPROLOL [Concomitant]
     Active Substance: BISOPROLOL
  8. CAPTOPRIL. [Concomitant]
     Active Substance: CAPTOPRIL
  9. TROXERUTIN [Concomitant]
     Active Substance: TROXERUTIN
  10. ATORVASTATIN [Concomitant]
     Active Substance: ATORVASTATIN

REACTIONS (6)
  - Drug ineffective [Not Recovered/Not Resolved]
  - Blood pressure increased [Not Recovered/Not Resolved]
  - Oedema peripheral [Recovering/Resolving]
  - Contusion [Recovering/Resolving]
  - Chills [Not Recovered/Not Resolved]
  - Mass [Recovering/Resolving]

NARRATIVE: CASE EVENT DATE: 201903
